FAERS Safety Report 18447931 (Version 3)
Quarter: 2020Q4

REPORT INFORMATION
  Report Type: Other
  Country: SG (occurrence: SG)
  Receive Date: 20201101
  Receipt Date: 20201118
  Transmission Date: 20210114
  Serious: Yes (Death)
  Sender: FDA-Public Use
  Company Number: SG-ROCHE-2703579

PATIENT

DRUGS (1)
  1. AVASTIN [Suspect]
     Active Substance: BEVACIZUMAB
     Indication: HUMAN EPIDERMAL GROWTH FACTOR RECEPTOR INCREASED
     Route: 042
     Dates: start: 20200720, end: 20201013

REACTIONS (1)
  - Death [Fatal]

NARRATIVE: CASE EVENT DATE: 20201013
